FAERS Safety Report 12896892 (Version 3)
Quarter: 2017Q4

REPORT INFORMATION
  Report Type: Spontaneous
  Country: US (occurrence: US)
  Receive Date: 20161031
  Receipt Date: 20171109
  Transmission Date: 20180320
  Serious: Yes (Hospitalization, Other)
  Sender: FDA-Public Use
  Company Number: US-PFIZER INC-2016501614

PATIENT
  Age: 49 Year
  Sex: Female

DRUGS (1)
  1. XELJANZ [Suspect]
     Active Substance: TOFACITINIB CITRATE
     Dosage: 5 MG
     Dates: start: 201401

REACTIONS (5)
  - Migraine [Unknown]
  - Fall [Unknown]
  - Anaemia [Unknown]
  - Full blood count decreased [Unknown]
  - Chest injury [Unknown]

NARRATIVE: CASE EVENT DATE: 201701
